FAERS Safety Report 21402711 (Version 11)
Quarter: 2024Q4

REPORT INFORMATION
  Report Type: Spontaneous
  Country: US (occurrence: US)
  Receive Date: 20221003
  Receipt Date: 20241230
  Transmission Date: 20250114
  Serious: No
  Sender: PFIZER
  Company Number: US-PFIZER INC-PV202200074433

PATIENT
  Age: 71 Year
  Sex: Female

DRUGS (4)
  1. IBRANCE [Suspect]
     Active Substance: PALBOCICLIB
     Indication: Breast cancer female
     Dosage: 5 DAYS ON AND 2 DAYS OFF PER WEEK
  2. IBRANCE [Suspect]
     Active Substance: PALBOCICLIB
     Dosage: QD FOR 5 DAYS, THEN STOP FOR 2 DAYS. REPEAT EACH WEEK. 14 DAYS ON AND 7 DAYS OFF
     Route: 048
  3. IBRANCE [Suspect]
     Active Substance: PALBOCICLIB
     Dosage: QD FOR 5 DAYS, THEN STOP FOR 2 DAYS. REPEAT EACH WEEK. 14 DAYS ON AND 7 DAYS OFF
     Route: 048
  4. IBRANCE [Suspect]
     Active Substance: PALBOCICLIB
     Dosage: QD FOR 5 DAY, THEN STOP FOR 2 DAYS. REPEAT EACH WEEK FOR 2 WEEK AND FULL 7 DAY OFF
     Route: 048

REACTIONS (3)
  - Epistaxis [Recovered/Resolved]
  - Full blood count decreased [Unknown]
  - Off label use [Unknown]
